FAERS Safety Report 8010984-0 (Version None)
Quarter: 2011Q4

REPORT INFORMATION
  Report Type: 
  Country: None (occurrence: None)
  Receive Date: 20111228
  Receipt Date: 20111221
  Transmission Date: 20120403
  Serious: Yes (Other)
  Sender: FDA-Public Use
  Company Number: IT-PFIZER INC-2011310927

PATIENT
  Age: 46 Year
  Sex: Female

DRUGS (1)
  1. SULFASALAZINE [Suspect]
     Indication: PSORIATIC ARTHROPATHY
     Dosage: 1500 MG DAILY
     Route: 048
     Dates: start: 20030101, end: 20030321

REACTIONS (3)
  - RASH PRURITIC [None]
  - HYPERPYREXIA [None]
  - PETECHIAE [None]
